FAERS Safety Report 6395397-X (Version None)
Quarter: 2009Q4

REPORT INFORMATION
  Report Type: 
  Country: None (occurrence: None)
  Receive Date: 20091009
  Receipt Date: 20090930
  Transmission Date: 20100525
  Serious: Yes (Hospitalization, Other)
  Sender: FDA-Public Use
  Company Number: JP-ELI_LILLY_AND_COMPANY-JP200910000953

PATIENT
  Age: 37 Year
  Sex: Female
  Weight: 50.3 kg

DRUGS (8)
  1. HUMALOG [Suspect]
     Dosage: UNK, AS NEEDED
     Route: 058
  2. HUMALOG [Suspect]
     Dosage: UNK, 3/D
     Route: 058
  3. PENFILL R [Concomitant]
     Dosage: 8-7-7 U, 3/D
     Route: 058
  4. LANTUS [Concomitant]
     Dosage: UNK, DAILY (1/D)
     Route: 058
     Dates: start: 20040101
  5. LANTUS [Concomitant]
     Dosage: 11 U, DAILY (1/D)
     Route: 058
  6. CYCLOSPORINE [Concomitant]
     Dosage: 300 MG, UNK
     Dates: start: 20020201
  7. CYCLOSPORINE [Concomitant]
     Dosage: 150 MG, UNK
  8. AZATHIOPRINE [Concomitant]
     Dosage: 25 MG, UNK
     Dates: start: 20060901

REACTIONS (5)
  - BACK PAIN [None]
  - DRUG EXPOSURE DURING PREGNANCY [None]
  - HYPERTENSIVE NEPHROPATHY [None]
  - HYPOGLYCAEMIA UNAWARENESS [None]
  - VITREOUS HAEMORRHAGE [None]
